FAERS Safety Report 24464628 (Version 1)
Quarter: 2024Q4

REPORT INFORMATION
  Report Type: Report from Study
  Country: US (occurrence: US)
  Receive Date: 20241018
  Receipt Date: 20241018
  Transmission Date: 20250115
  Serious: No
  Sender: ROCHE
  Company Number: US-ROCHE-3492028

PATIENT
  Age: 63 Year
  Sex: Female
  Weight: 83.91 kg

DRUGS (18)
  1. XOLAIR [Suspect]
     Active Substance: OMALIZUMAB
     Indication: Urticaria
     Route: 065
     Dates: start: 2022
  2. XOLAIR [Suspect]
     Active Substance: OMALIZUMAB
     Indication: Idiopathic urticaria
     Dosage: ROUTE: INTRAMUSCULAR
     Route: 065
     Dates: start: 20230701, end: 20230730
  3. MOUNJARO [Concomitant]
     Active Substance: TIRZEPATIDE
  4. JARDIANCE [Concomitant]
     Active Substance: EMPAGLIFLOZIN
     Route: 048
  5. CHLORPHENIRAMINE [Concomitant]
     Active Substance: CHLORPHENIRAMINE
  6. DOXEPIN [Concomitant]
     Active Substance: DOXEPIN
  7. EPIPEN [Concomitant]
     Active Substance: EPINEPHRINE
  8. HYDROXYZINE HYDROCHLORIDE [Concomitant]
     Active Substance: HYDROXYZINE HYDROCHLORIDE
  9. LEVOCETIRIZINE [Concomitant]
     Active Substance: LEVOCETIRIZINE
  10. PANTOPRAZOLE [Concomitant]
     Active Substance: PANTOPRAZOLE
  11. TACROLIMUS [Concomitant]
     Active Substance: TACROLIMUS
  12. TRIAMCINOLONE [Concomitant]
     Active Substance: TRIAMCINOLONE
  13. BENADRYL [Concomitant]
     Active Substance: DIPHENHYDRAMINE HYDROCHLORIDE
  14. RYBELSUS [Concomitant]
     Active Substance: SEMAGLUTIDE
  15. FAMOTIDINE [Concomitant]
     Active Substance: FAMOTIDINE
  16. CETIRIZINE [Concomitant]
     Active Substance: CETIRIZINE HYDROCHLORIDE
  17. XYZAL [Concomitant]
     Active Substance: LEVOCETIRIZINE DIHYDROCHLORIDE
  18. VITAMIN D3 [Concomitant]
     Active Substance: CHOLECALCIFEROL

REACTIONS (3)
  - Urticaria [Unknown]
  - Lip swelling [Unknown]
  - Diabetes mellitus [Unknown]
